FAERS Safety Report 15124523 (Version 1)
Quarter: 2018Q3

REPORT INFORMATION
  Report Type: Spontaneous
  Country: BR (occurrence: BR)
  Receive Date: 20180710
  Receipt Date: 20180710
  Transmission Date: 20181010
  Serious: Yes (Other)
  Sender: FDA-Public Use
  Company Number: BR-ROCHE-1176961

PATIENT
  Age: 32 Year
  Sex: Female
  Weight: 55 kg

DRUGS (5)
  1. RIVOTRIL [Suspect]
     Active Substance: CLONAZEPAM
     Indication: BIPOLAR DISORDER
  2. RIVOTRIL [Suspect]
     Active Substance: CLONAZEPAM
     Indication: ANXIETY
  3. LAMITOR [Concomitant]
     Active Substance: LAMOTRIGINE
     Indication: DEPRESSION
     Route: 065
     Dates: start: 20130102
  4. RIVOTRIL [Suspect]
     Active Substance: CLONAZEPAM
     Indication: DEPRESSION
     Dosage: 1 DROP PER DAY, FORM STRENGTH: 2.5 MG/ML
     Route: 048
     Dates: start: 201211
  5. RIVOTRIL [Suspect]
     Active Substance: CLONAZEPAM
     Indication: SOCIAL AVOIDANT BEHAVIOUR

REACTIONS (13)
  - Overdose [Unknown]
  - Hypersensitivity [Unknown]
  - Malaise [Not Recovered/Not Resolved]
  - Cerebral atrophy [Unknown]
  - Drug tolerance [Unknown]
  - Product taste abnormal [Unknown]
  - Drug ineffective [Unknown]
  - Thought blocking [Unknown]
  - Drug dependence [Not Recovered/Not Resolved]
  - Insomnia [Unknown]
  - Intentional product misuse [Unknown]
  - Product contamination [Unknown]
  - Neurotransmitter level altered [Unknown]

NARRATIVE: CASE EVENT DATE: 20130103
